FAERS Safety Report 10226429 (Version 1)
Quarter: 2014Q2

REPORT INFORMATION
  Report Type: Spontaneous
  Country: US (occurrence: US)
  Receive Date: 20140609
  Receipt Date: 20140609
  Transmission Date: 20141212
  Serious: Yes (Hospitalization)
  Sender: FDA-Public Use
  Company Number: US-AMGEN INC.-USASP2013057231

PATIENT
  Age: 87 Year
  Sex: Female

DRUGS (1)
  1. PROCRIT [Suspect]
     Indication: RENAL FAILURE CHRONIC
     Dosage: 10000 UNIT, QWK
     Route: 058

REACTIONS (2)
  - Cerebrovascular accident [Unknown]
  - Blood pressure increased [Recovered/Resolved]
